FAERS Safety Report 22610190 (Version 1)
Quarter: 2023Q2

REPORT INFORMATION
  Report Type: Spontaneous
  Country: US (occurrence: US)
  Receive Date: 20230616
  Receipt Date: 20230616
  Transmission Date: 20230722
  Serious: Yes (Other)
  Sender: FDA-Public Use
  Company Number: US-REGENERON PHARMACEUTICALS, INC.-2023-077608

PATIENT
  Sex: Male

DRUGS (2)
  1. EYLEA [Suspect]
     Active Substance: AFLIBERCEPT
     Indication: Macular degeneration
     Dosage: 4 MG, INTO BOTH EYES, FORMULATION: UNKNOWN
     Route: 031
  2. EYLEA [Suspect]
     Active Substance: AFLIBERCEPT
     Dosage: 2 MG, INTO RIGHT EYE, FORMULATION: UNKNOWN
     Route: 031

REACTIONS (7)
  - Eye haemorrhage [Unknown]
  - Eye haemorrhage [Unknown]
  - Product dose omission issue [Recovered/Resolved]
  - Visual impairment [Unknown]
  - Visual impairment [Unknown]
  - Vitreous floaters [Recovering/Resolving]
  - Vision blurred [Unknown]

NARRATIVE: CASE EVENT DATE: 20230101
